FAERS Safety Report 6950159 (Version 3)
Quarter: 2014Q1

REPORT INFORMATION
  Report Type: Spontaneous
  Country: US (occurrence: None)
  Receive Date: 20090227
  Receipt Date: 20140304
  Transmission Date: 20141002
  Serious: Yes (Hospitalization, Other)
  Sender: FDA-Public Use
  Company Number: RB-6143-2008

PATIENT
  Sex: Male

DRUGS (5)
  1. SUBUTEX [Suspect]
     Indication: PRODUCT USED FOR UNKNOWN INDICATION
     Dosage: 12 MG TRANSPLACENTAL
     Route: 064
     Dates: start: 20080514, end: 20081029
  2. CALCIUM CARBONATE [Concomitant]
  3. PRENATAL [Concomitant]
  4. REGLAN [Concomitant]
  5. NICODERM [Concomitant]

REACTIONS (2)
  - Drug withdrawal syndrome neonatal [None]
  - Foetal exposure during pregnancy [None]
